FAERS Safety Report 11631869 (Version 1)
Quarter: 2015Q4

REPORT INFORMATION
  Report Type: Spontaneous
  Country: US (occurrence: None)
  Receive Date: 20151014
  Receipt Date: 20151014
  Transmission Date: 20160304
  Serious: Yes (Hospitalization)
  Sender: FDA-Public Use
  Company Number: None

PATIENT
  Age: 46 Year
  Sex: Female
  Weight: 77.11 kg

DRUGS (4)
  1. BUPROPRION XL [Suspect]
     Active Substance: BUPROPION
     Indication: DEPRESSION
     Dates: start: 20120906, end: 20150924
  2. ESCITALOPRAM [Concomitant]
     Active Substance: ESCITALOPRAM OXALATE
  3. LORAZEPAM. [Concomitant]
     Active Substance: LORAZEPAM
  4. BUPROPRION XL [Suspect]
     Active Substance: BUPROPION
     Indication: GENERALISED ANXIETY DISORDER
     Dates: start: 20120906, end: 20150924

REACTIONS (3)
  - Postictal state [None]
  - Amnesia [None]
  - Seizure [None]

NARRATIVE: CASE EVENT DATE: 20150909
